FAERS Safety Report 5715079-4 (Version None)
Quarter: 2008Q2

REPORT INFORMATION
  Report Type: 
  Country: None (occurrence: None)
  Receive Date: 20080423
  Receipt Date: 20080422
  Transmission Date: 20081010
  Serious: Yes (Hospitalization)
  Sender: FDA-Public Use
  Company Number: US-BOEHRINGER INGELHEIM GMBH, GERMANY-2008-DE-02417GD

PATIENT
  Age: 20 Year
  Sex: Female

DRUGS (1)
  1. MORPHINE [Suspect]
     Indication: ABDOMINAL PAIN
     Dosage: 90 MG INCREASED TO 360 MG MORPHINE OR EQUIVALENT
     Route: 042

REACTIONS (6)
  - ADVERSE DRUG REACTION [None]
  - DRUG DEPENDENCE [None]
  - DRUG INEFFECTIVE [None]
  - INTESTINAL FUNCTIONAL DISORDER [None]
  - NAUSEA [None]
  - VOMITING [None]
